FAERS Safety Report 6025415-X (Version None)
Quarter: 2008Q4

REPORT INFORMATION
  Report Type: 
  Country: None (occurrence: None)
  Receive Date: 20081224
  Receipt Date: 20081212
  Transmission Date: 20090506
  Serious: No
  Sender: FDA-Public Use
  Company Number: 20085963

PATIENT
  Age: 24 Year
  Sex: Male

DRUGS (1)
  1. LIORESAL [Suspect]
     Indication: MUSCLE SPASTICITY
     Dosage: MCG, DAILY, INTRATHECAL
     Route: 037

REACTIONS (8)
  - BACTERIA URINE [None]
  - BLOODY DISCHARGE [None]
  - IATROGENIC INJURY [None]
  - IMPLANT SITE REACTION [None]
  - INFLUENZA LIKE ILLNESS [None]
  - PYREXIA [None]
  - STAPHYLOCOCCAL INFECTION [None]
  - SWELLING [None]
